FAERS Safety Report 5129717-0 (Version None)
Quarter: 2006Q4

REPORT INFORMATION
  Report Type: 
  Country: None (occurrence: None)
  Receive Date: 20061018
  Receipt Date: 20061006
  Transmission Date: 20070319
  Serious: Yes (Other)
  Sender: FDA-Public Use
  Company Number: GB-ROCHE-466784

PATIENT
  Age: 26 Year
  Sex: Male
  Weight: 85 kg

DRUGS (1)
  1. LARIAM [Suspect]
     Indication: MALARIA PROPHYLAXIS
     Route: 048

REACTIONS (5)
  - INFLAMMATION [None]
  - ORAL ADMINISTRATION COMPLICATION [None]
  - PHARYNGEAL ULCERATION [None]
  - PHARYNGOLARYNGEAL PAIN [None]
  - TONGUE ULCERATION [None]
